FAERS Safety Report 20767995 (Version 1)
Quarter: 2022Q2

REPORT INFORMATION
  Report Type: Spontaneous
  Country: CA (occurrence: None)
  Receive Date: 20220429
  Receipt Date: 20220429
  Transmission Date: 20220720
  Serious: Yes (Other)
  Sender: FDA-Public Use
  Company Number: CA-ROCHE-3082601

PATIENT
  Age: 64 Year
  Sex: Female

DRUGS (3)
  1. DESOXIMETASONE [Suspect]
     Active Substance: DESOXIMETASONE
     Indication: Product used for unknown indication
     Route: 065
  2. RITUXIMAB [Suspect]
     Active Substance: RITUXIMAB
     Indication: Rheumatoid arthritis
     Route: 065
  3. SULFASALAZINE [Suspect]
     Active Substance: SULFASALAZINE
     Indication: Product used for unknown indication
     Route: 065

REACTIONS (4)
  - Angina pectoris [Not Recovered/Not Resolved]
  - Decreased appetite [Not Recovered/Not Resolved]
  - Erythema [Not Recovered/Not Resolved]
  - Oedema peripheral [Not Recovered/Not Resolved]
